FAERS Safety Report 12571407 (Version 1)
Quarter: 2016Q3

REPORT INFORMATION
  Report Type: Spontaneous
  Country: TR (occurrence: TR)
  Receive Date: 20160719
  Receipt Date: 20160719
  Transmission Date: 20161109
  Serious: Yes (Hospitalization)
  Sender: FDA-Public Use
  Company Number: TR-IPCA LABORATORIES LIMITED-IPC201607-000604

PATIENT
  Age: 80 Year
  Sex: Female

DRUGS (1)
  1. WARFARIN [Suspect]
     Active Substance: WARFARIN
     Indication: DEEP VEIN THROMBOSIS

REACTIONS (5)
  - Peritoneal haemorrhage [Unknown]
  - Overdose [Unknown]
  - Shock haemorrhagic [Recovering/Resolving]
  - Drug interaction [Unknown]
  - Intestinal haematoma [Unknown]
